FAERS Safety Report 15800109 (Version 2)
Quarter: 2019Q1

REPORT INFORMATION
  Report Type: Spontaneous
  Country: GB (occurrence: GB)
  Receive Date: 20190108
  Receipt Date: 20190115
  Transmission Date: 20190417
  Serious: Yes (Other)
  Sender: FDA-Public Use
  Company Number: PHHY2019GB001620

PATIENT
  Age: 45 Year
  Sex: Female

DRUGS (2)
  1. CISPLATIN. [Suspect]
     Active Substance: CISPLATIN
     Indication: OVARIAN EPITHELIAL CANCER
     Dosage: 960 MG, UNK (SIX COURSES)
     Route: 065
  2. CARBOPLATIN. [Suspect]
     Active Substance: CARBOPLATIN
     Indication: OVARIAN EPITHELIAL CANCER
     Dosage: 3780 MG, UNK (SIX COURSES)
     Route: 065

REACTIONS (2)
  - Acute myeloid leukaemia [Unknown]
  - Second primary malignancy [Unknown]
